FAERS Safety Report 13801660 (Version 4)
Quarter: 2017Q4

REPORT INFORMATION
  Report Type: Report from Study
  Country: US (occurrence: US)
  Receive Date: 20170727
  Receipt Date: 20171211
  Transmission Date: 20180320
  Serious: Yes (Other)
  Sender: FDA-Public Use
  Company Number: US-ROCHE-1967115

PATIENT
  Age: 56 Year
  Sex: Female
  Weight: 55.39 kg

DRUGS (4)
  1. BENADRYL [Concomitant]
     Active Substance: DIPHENHYDRAMINE HYDROCHLORIDE
     Indication: PREMEDICATION
     Route: 065
     Dates: start: 20170711
  2. OCREVUS [Suspect]
     Active Substance: OCRELIZUMAB
     Indication: PROGRESSIVE RELAPSING MULTIPLE SCLEROSIS
     Route: 042
     Dates: start: 201706
  3. RITUXAN [Suspect]
     Active Substance: RITUXIMAB
     Indication: PROGRESSIVE MULTIPLE SCLEROSIS
     Route: 065
     Dates: start: 201701, end: 2017
  4. OCREVUS [Suspect]
     Active Substance: OCRELIZUMAB
     Indication: PROGRESSIVE MULTIPLE SCLEROSIS
     Route: 042
     Dates: start: 20170711

REACTIONS (16)
  - Urinary tract infection [Unknown]
  - Cystitis [Unknown]
  - Spinal deformity [Unknown]
  - Bone disorder [Unknown]
  - Malaise [Unknown]
  - Escherichia infection [Unknown]
  - Musculoskeletal chest pain [Unknown]
  - Muscle spasms [Not Recovered/Not Resolved]
  - Intervertebral disc protrusion [Not Recovered/Not Resolved]
  - Tooth abscess [Unknown]
  - Kyphosis [Not Recovered/Not Resolved]
  - Dyspnoea [Unknown]
  - Oedema peripheral [Unknown]
  - Gait disturbance [Not Recovered/Not Resolved]
  - Intentional product use issue [Unknown]
  - Off label use [Unknown]

NARRATIVE: CASE EVENT DATE: 201709
